FAERS Safety Report 18364674 (Version 1)
Quarter: 2020Q4

REPORT INFORMATION
  Report Type: Spontaneous
  Country: US (occurrence: US)
  Receive Date: 20201009
  Receipt Date: 20201009
  Transmission Date: 20210114
  Serious: No
  Sender: FDA-Public Use
  Company Number: US-PFIZER INC-2020388317

PATIENT
  Sex: Male

DRUGS (4)
  1. KERYDIN [Suspect]
     Active Substance: TAVABOROLE
     Dosage: UNK
  2. KERYDIN [Suspect]
     Active Substance: TAVABOROLE
     Dosage: UNK
  3. KERYDIN [Suspect]
     Active Substance: TAVABOROLE
     Dosage: UNK
  4. KERYDIN [Suspect]
     Active Substance: TAVABOROLE
     Dosage: UNK

REACTIONS (2)
  - Depression [Unknown]
  - Expired product administered [Unknown]
